FAERS Safety Report 5168355-0 (Version None)
Quarter: 2006Q4

REPORT INFORMATION
  Report Type: 
  Country: None (occurrence: None)
  Receive Date: 20061208
  Receipt Date: 20061115
  Transmission Date: 20070319
  Serious: Yes (Hospitalization)
  Sender: FDA-Public Use
  Company Number: DE-SANOFI-SYNTHELABO-A04200601225

PATIENT
  Sex: Female
  Weight: 64 kg

DRUGS (5)
  1. LEUCOVORIN CALCIUM [Suspect]
     Indication: COLON CANCER
     Route: 041
     Dates: start: 20061009, end: 20061009
  2. FLUOROURACIL [Suspect]
     Indication: COLON CANCER
     Route: 040
     Dates: start: 20061009, end: 20061009
  3. FLUOROURACIL [Suspect]
     Route: 041
     Dates: start: 20061009, end: 20061009
  4. ELOXATIN [Suspect]
     Indication: COLON CANCER
     Route: 041
     Dates: start: 20061009, end: 20061009
  5. AVASTIN [Suspect]
     Indication: COLON CANCER
     Route: 041
     Dates: start: 20061009, end: 20061009

REACTIONS (4)
  - CHEST PAIN [None]
  - NAUSEA [None]
  - SPLENIC RUPTURE [None]
  - VOMITING [None]
